FAERS Safety Report 8187311-1 (Version None)
Quarter: 2012Q1

REPORT INFORMATION
  Report Type: 
  Country: None (occurrence: None)
  Receive Date: 20120306
  Receipt Date: 20111114
  Transmission Date: 20120608
  Serious: Yes (Hospitalization)
  Sender: FDA-Public Use
  Company Number: DE-ROCHE-1005845

PATIENT
  Sex: Male
  Weight: 80 kg

DRUGS (3)
  1. IRINOTECAN HCL [Suspect]
     Indication: COLORECTAL CANCER METASTATIC
     Dosage: ONCE DAILY,LST DOSE PRIOR TO SAE ON 19 SEP 2011.
     Route: 042
     Dates: start: 20110829
  2. AVASTIN [Suspect]
     Indication: COLORECTAL CANCER METASTATIC
     Dosage: ONCE,LAST DOSE PRIOR TO SAE ON 19 SEP 2011.
     Route: 042
     Dates: start: 20110829
  3. XELODA [Suspect]
     Indication: COLORECTAL CANCER METASTATIC
     Route: 048
     Dates: start: 20110829

REACTIONS (1)
  - RETINAL DETACHMENT [None]
